FAERS Safety Report 10074267 (Version 1)
Quarter: 2014Q2

REPORT INFORMATION
  Report Type: Spontaneous
  Country: US (occurrence: US)
  Receive Date: 20140411
  Receipt Date: 20140411
  Transmission Date: 20141212
  Serious: No
  Sender: FDA-Public Use
  Company Number: US-SANOFI-AVENTIS-2013SA040027

PATIENT
  Age: 11 Year
  Sex: Male
  Weight: 54.43 kg

DRUGS (3)
  1. ALLEGRA D [Suspect]
     Indication: NASAL CONGESTION
  2. ALLEGRA D [Suspect]
     Indication: MULTIPLE ALLERGIES
  3. ALLEGRA D [Suspect]

REACTIONS (2)
  - Wrong drug administered [Unknown]
  - Extra dose administered [Unknown]
